FAERS Safety Report 12779553 (Version 1)
Quarter: 2016Q3

REPORT INFORMATION
  Report Type: Spontaneous
  Country: US (occurrence: US)
  Receive Date: 20160922
  Receipt Date: 20160922
  Transmission Date: 20161109
  Serious: No
  Sender: FDA-Public Use
  Company Number: None

PATIENT
  Age: 71 Year
  Sex: Male
  Weight: 78.9 kg

DRUGS (1)
  1. WARFARIN [Suspect]
     Active Substance: WARFARIN
     Route: 048
     Dates: start: 20080314, end: 20091027

REACTIONS (9)
  - Blindness [None]
  - International normalised ratio increased [None]
  - Haemorrhage intracranial [None]
  - Unresponsive to stimuli [None]
  - Hypopnoea [None]
  - Influenza like illness [None]
  - Anticoagulation drug level below therapeutic [None]
  - Cough [None]
  - Pupils unequal [None]

NARRATIVE: CASE EVENT DATE: 20091027
